FAERS Safety Report 9656732 (Version 1)
Quarter: 2013Q4

REPORT INFORMATION
  Report Type: Spontaneous
  Country: US (occurrence: None)
  Receive Date: 20131029
  Receipt Date: 20131029
  Transmission Date: 20140711
  Serious: Yes (Hospitalization)
  Sender: FDA-Public Use
  Company Number: None

PATIENT
  Age: 6 Year
  Sex: Female
  Weight: 6.48 kg

DRUGS (1)
  1. ZOLEDRONIC ACID [Suspect]
     Indication: PROGERIA
     Route: 042
     Dates: end: 20121206

REACTIONS (1)
  - Investigation [None]
